FAERS Safety Report 7197609-1 (Version None)
Quarter: 2010Q4

REPORT INFORMATION
  Report Type: 
  Country: None (occurrence: None)
  Receive Date: 20101227
  Receipt Date: 20101216
  Transmission Date: 20110411
  Serious: Yes (Disabling)
  Sender: FDA-Public Use
  Company Number: VE-ASTRAZENECA-2010SE54062

PATIENT
  Age: 58 Year
  Sex: Female
  Weight: 60 kg

DRUGS (4)
  1. FASLODEX [Suspect]
     Indication: BREAST CANCER
     Route: 030
     Dates: start: 20100914
  2. FASLODEX [Suspect]
     Route: 030
     Dates: start: 20100928
  3. FASLODEX [Suspect]
     Route: 030
     Dates: start: 20101019
  4. SOMETA [Concomitant]
     Indication: BREAST CANCER

REACTIONS (1)
  - BACK PAIN [None]
